APPROVED DRUG PRODUCT: PHENYLEPHRINE HYDROCHLORIDE
Active Ingredient: PHENYLEPHRINE HYDROCHLORIDE
Strength: 50MG/5ML (10MG/ML)
Dosage Form/Route: SOLUTION;INTRAVENOUS
Application: A217521 | Product #002 | TE Code: AP2
Applicant: BE PHARMACEUTICALS AG
Approved: Jun 26, 2023 | RLD: No | RS: No | Type: RX